FAERS Safety Report 19138578 (Version 1)
Quarter: 2021Q2

REPORT INFORMATION
  Report Type: Report from Study
  Country: None (occurrence: IL)
  Receive Date: 20210415
  Receipt Date: 20210415
  Transmission Date: 20210717
  Serious: Yes (Other)
  Sender: FDA-Public Use
  Company Number: IL-ABBVIE-21K-082-3856479-00

PATIENT
  Age: 55 Year
  Sex: Female

DRUGS (2)
  1. DUODOPA [Suspect]
     Active Substance: CARBIDOPA\LEVODOPA
  2. DUODOPA [Suspect]
     Active Substance: CARBIDOPA\LEVODOPA
     Indication: PARKINSON^S DISEASE
     Dosage: MORNING DOSAGE(ML)  8.0, CONTINUOUS DOSAGE (ML/H)  2.9, EXTRA DOSAGE (ML)  1.5.
     Route: 050
     Dates: start: 20200106

REACTIONS (7)
  - Discoloured vomit [Unknown]
  - Haematemesis [Unknown]
  - Infrequent bowel movements [Unknown]
  - Bezoar [Unknown]
  - Cholecystitis [Not Recovered/Not Resolved]
  - Stoma site hypergranulation [Not Recovered/Not Resolved]
  - Abdominal pain upper [Unknown]

NARRATIVE: CASE EVENT DATE: 20210411
